FAERS Safety Report 4302530-X (Version None)
Quarter: 2004Q1

REPORT INFORMATION
  Report Type: 
  Country: None (occurrence: None)
  Receive Date: 20040220
  Receipt Date: 20031105
  Transmission Date: 20041129
  Serious: Yes (Hospitalization)
  Sender: FDA-Public Use
  Company Number: 430054P03USA

PATIENT
  Age: 31 Year
  Sex: Female
  Weight: 70.31 kg

DRUGS (10)
  1. NOVANTRONE [Suspect]
     Indication: MULTIPLE SCLEROSIS
     Dosage: SEE IMAGE
     Dates: start: 20031204
  2. FLUOXETINE HCL [Concomitant]
  3. FEXOFENADINE HYDROCHLORIDE [Concomitant]
  4. TOLTERODINE L-TARTRATE [Concomitant]
  5. SIMVASTATIN [Concomitant]
  6. VALPROATE SEMISODIUM [Concomitant]
  7. SENNA FRUIT [Concomitant]
  8. NITROFURANTOIN [Concomitant]
  9. TIZANIDINE HYDROCHLORIDE [Concomitant]
  10. BACLOFEN [Concomitant]

REACTIONS (1)
  - IMPLANT SITE INFECTION [None]
